FAERS Safety Report 9746034 (Version 1)
Quarter: 2013Q4

REPORT INFORMATION
  Report Type: Report from Study
  Country: FR (occurrence: FR)
  Receive Date: 20131211
  Receipt Date: 20131211
  Transmission Date: 20140711
  Serious: Yes (Death, Hospitalization, Other)
  Sender: FDA-Public Use
  Company Number: FR-TEVA-449639USA

PATIENT
  Age: 61 Year
  Sex: Male

DRUGS (13)
  1. BENDAMUSTINE [Suspect]
     Indication: PLASMA CELL MYELOMA
     Dates: start: 20120905, end: 20130617
  2. VELCADE [Suspect]
     Indication: PLASMA CELL MYELOMA
     Dates: start: 20110520, end: 20111120
  3. VELCADE [Suspect]
     Dates: start: 20120905, end: 20130117
  4. REVLIMID [Suspect]
     Indication: PLASMA CELL MYELOMA
     Dates: start: 20110520, end: 20111120
  5. DEXAMETHASONE [Suspect]
     Indication: PLASMA CELL MYELOMA
     Dates: start: 20110520, end: 20111120
  6. DEXAMETHASONE [Suspect]
     Dates: start: 20120905, end: 20130117
  7. DEXAMETHASONE [Suspect]
     Dates: start: 20130125
  8. POMALIDOMIDE [Suspect]
     Indication: PLASMA CELL MYELOMA
     Dates: start: 20130125
  9. EPOETIN BETA [Concomitant]
     Indication: PRODUCT USED FOR UNKNOWN INDICATION
     Dates: start: 201301
  10. VORICONAZOLE [Concomitant]
     Dates: start: 20130306
  11. VORICONAZOLE [Concomitant]
     Dates: start: 201305
  12. CILASTATIN SODIUM [Concomitant]
     Dates: start: 20130513
  13. FILGRASTIM [Concomitant]
     Dates: start: 20130513

REACTIONS (2)
  - Pyrexia [Recovered/Resolved]
  - Death [Fatal]
